FAERS Safety Report 8443038-X (Version None)
Quarter: 2012Q2

REPORT INFORMATION
  Report Type: 
  Country: None (occurrence: None)
  Receive Date: 20120615
  Receipt Date: 20120606
  Transmission Date: 20120825
  Serious: Yes (Life-Threatening, Hospitalization, Other)
  Sender: FDA-Public Use
  Company Number: GXBR2012US001504

PATIENT
  Sex: Female
  Weight: 102.4 kg

DRUGS (3)
  1. VITAMINS NOS [Concomitant]
     Indication: SUPPLEMENTATION THERAPY
     Dosage: UNK DF, UNK
  2. AMIODARONE HYDROCHLORIDE [Suspect]
     Indication: ATRIAL FIBRILLATION
     Dosage: 200 MG, QD
     Route: 048
     Dates: start: 20120515, end: 20120519
  3. UNSPECIFIED HERBAL [Concomitant]
     Indication: SUPPLEMENTATION THERAPY
     Dosage: UNK DF, UNK

REACTIONS (10)
  - ATRIAL FIBRILLATION [None]
  - GASTRIC ULCER [None]
  - PRODUCTIVE COUGH [None]
  - DYSPNOEA [None]
  - PYREXIA [None]
  - PNEUMONIA [None]
  - CHILLS [None]
  - PULMONARY CONGESTION [None]
  - FATIGUE [None]
  - ASTHENIA [None]
